FAERS Safety Report 17113347 (Version 1)
Quarter: 2019Q4

REPORT INFORMATION
  Report Type: Spontaneous
  Country: IT (occurrence: IT)
  Receive Date: 20191204
  Receipt Date: 20191204
  Transmission Date: 20200122
  Serious: Yes (Life-Threatening, Hospitalization)
  Sender: FDA-Public Use
  Company Number: IT-PBT-000020

PATIENT
  Age: 17 Year

DRUGS (4)
  1. TACROLIMUS. [Suspect]
     Active Substance: TACROLIMUS
     Indication: PROPHYLAXIS AGAINST TRANSPLANT REJECTION
  2. MYCOPHENOLATE MOFETIL. [Suspect]
     Active Substance: MYCOPHENOLATE MOFETIL
     Indication: PROPHYLAXIS AGAINST TRANSPLANT REJECTION
     Route: 065
  3. COLCHICINE. [Interacting]
     Active Substance: COLCHICINE
     Indication: CAPILLARY LEAK SYNDROME
     Dosage: INITIAL DOSE
     Route: 065
  4. COLCHICINE. [Interacting]
     Active Substance: COLCHICINE
     Indication: ACUTE KIDNEY INJURY
     Route: 065

REACTIONS (4)
  - Leukopenia [Recovered/Resolved]
  - Drug interaction [Unknown]
  - Capillary leak syndrome [Recovered/Resolved]
  - Acute kidney injury [Recovered/Resolved]
